FAERS Safety Report 10873935 (Version 1)
Quarter: 2015Q1

REPORT INFORMATION
  Report Type: Spontaneous
  Country: US (occurrence: None)
  Receive Date: 20150224
  Receipt Date: 20150224
  Transmission Date: 20150721
  Serious: Yes (Hospitalization)
  Sender: FDA-Public Use
  Company Number: US-ZYDUS-006750

PATIENT
  Age: 19 Month
  Sex: Male

DRUGS (1)
  1. LAMOTRIGINE (LAMOTRIGINE) [Suspect]
     Active Substance: LAMOTRIGINE

REACTIONS (7)
  - Vomiting [None]
  - Toxicity to various agents [None]
  - Accidental exposure to product [None]
  - Dysarthria [None]
  - Confusional state [None]
  - Crying [None]
  - Agitation [None]
